FAERS Safety Report 20540708 (Version 1)
Quarter: 2022Q1

REPORT INFORMATION
  Report Type: Spontaneous
  Country: PT (occurrence: PT)
  Receive Date: 20220302
  Receipt Date: 20220302
  Transmission Date: 20220424
  Serious: Yes (Other)
  Sender: FDA-Public Use
  Company Number: None

PATIENT
  Age: 15 Year
  Sex: Male
  Weight: 70 kg

DRUGS (6)
  1. HALOPERIDOL [Suspect]
     Active Substance: HALOPERIDOL
     Indication: Aggression
     Dosage: SOS; AS REQUIRED
     Route: 030
     Dates: start: 20210109, end: 20210109
  2. PROMETHAZINE [Suspect]
     Active Substance: PROMETHAZINE HYDROCHLORIDE
     Indication: Aggression
     Dosage: SOS; AS REQUIRED
     Route: 030
     Dates: start: 20210109, end: 20210109
  3. BIPERIDEN [Concomitant]
     Active Substance: BIPERIDEN
     Route: 048
  4. BIPERIDEN [Concomitant]
     Active Substance: BIPERIDEN
  5. BIPERIDEN [Concomitant]
     Active Substance: BIPERIDEN
  6. OLANZAPINE [Concomitant]
     Active Substance: OLANZAPINE
     Route: 048

REACTIONS (3)
  - Aggression [Recovered/Resolved]
  - Psychomotor hyperactivity [Recovered/Resolved]
  - Cyanosis [Recovered/Resolved]

NARRATIVE: CASE EVENT DATE: 20210109
